FAERS Safety Report 22888493 (Version 2)
Quarter: 2023Q4

REPORT INFORMATION
  Report Type: Spontaneous
  Country: IN (occurrence: IN)
  Receive Date: 20230831
  Receipt Date: 20231107
  Transmission Date: 20240109
  Serious: Yes (Other)
  Sender: FDA-Public Use
  Company Number: IN-PFIZER INC-PV202200083218

PATIENT
  Age: 42 Year
  Sex: Female

DRUGS (6)
  1. DACOMITINIB [Suspect]
     Active Substance: DACOMITINIB
     Dosage: 30 MG, 1X/DAY
     Route: 048
     Dates: start: 20220926
  2. DOXYCYCLINE [Concomitant]
     Active Substance: DOXYCYCLINE
     Dosage: UNK
  3. DOXYCYCLINE [Concomitant]
     Active Substance: DOXYCYCLINE
     Dosage: 100 MG
     Route: 048
  4. MUCORAL [Concomitant]
     Dosage: UNK, 3X/DAY
  5. ANOVATE [BECLOMETASONE DIPROPIONATE;LIDOCAINE HYDROCHLORIDE;PHENYLEPHR [Concomitant]
     Dosage: UNK, 2X/DAY
  6. MUCOBENZ [Concomitant]

REACTIONS (16)
  - Carcinoembryonic antigen increased [Unknown]
  - Rash [Unknown]
  - Diarrhoea [Unknown]
  - Insomnia [Unknown]
  - Dyspepsia [Unknown]
  - Palmar-plantar erythrodysaesthesia syndrome [Unknown]
  - Dizziness [Unknown]
  - Asthenia [Unknown]
  - Nail bed infection [Unknown]
  - Breast mass [Unknown]
  - Weight decreased [Unknown]
  - Body mass index increased [Unknown]
  - Constipation [Unknown]
  - Blood creatinine abnormal [Unknown]
  - Nausea [Unknown]
  - Vomiting [Unknown]
